FAERS Safety Report 13278550 (Version 2)
Quarter: 2017Q1

REPORT INFORMATION
  Report Type: Spontaneous
  Country: US (occurrence: US)
  Receive Date: 20170228
  Receipt Date: 20170308
  Transmission Date: 20170428
  Serious: Yes (Hospitalization)
  Sender: FDA-Public Use
  Company Number: US-TAIHO ONCOLOGY INC-EU-2017-00361

PATIENT
  Age: 72 Year
  Sex: Male

DRUGS (31)
  1. PROVENTIL [Concomitant]
     Active Substance: ALBUTEROL
     Dosage: NI
  2. SIMVASTATIN. [Concomitant]
     Active Substance: SIMVASTATIN
     Dosage: NI
  3. EFFEXOR [Concomitant]
     Active Substance: VENLAFAXINE HYDROCHLORIDE
     Dosage: NI
  4. DOXAZOSIN [Concomitant]
     Active Substance: DOXAZOSIN\DOXAZOSIN MESYLATE
     Dosage: NI
  5. NOVOLOG [Concomitant]
     Active Substance: INSULIN ASPART
     Dosage: NI
  6. MELATONIN [Concomitant]
     Active Substance: MELATONIN
     Dosage: NI
  7. FERROUS SULFATE. [Concomitant]
     Active Substance: FERROUS SULFATE
     Dosage: NI
  8. METFORMIN [Concomitant]
     Active Substance: METFORMIN HYDROCHLORIDE
     Dosage: NI
  9. TOPROL XL [Concomitant]
     Active Substance: METOPROLOL SUCCINATE
     Dosage: NI
  10. LASIX [Concomitant]
     Active Substance: FUROSEMIDE
     Dosage: NI
  11. GLUCOTROL [Concomitant]
     Active Substance: GLIPIZIDE
     Dosage: NI
  12. LONSURF [Suspect]
     Active Substance: TIPIRACIL HYDROCHLORIDE\TRIFLURIDINE
     Indication: RECTAL CANCER
     Dosage: CYCLE 1 WAS CONTINUED STARTING 15FEB2017
     Route: 048
     Dates: start: 20170204, end: 20170205
  13. MAALOX ANTACID [Concomitant]
     Active Substance: ALUMINUM HYDROXIDE\DIMETHICONE\MAGNESIUM HYDROXIDE
     Dosage: NI
  14. MAG-OX [Concomitant]
     Active Substance: MAGNESIUM OXIDE
     Dosage: NI
  15. PAMELOR [Concomitant]
     Active Substance: NORTRIPTYLINE HYDROCHLORIDE
     Dosage: NI
  16. ALPRAZOLAM. [Concomitant]
     Active Substance: ALPRAZOLAM
     Dosage: NI
  17. ELIQUIS [Concomitant]
     Active Substance: APIXABAN
     Dosage: NI
  18. ZOFRAN [Concomitant]
     Active Substance: ONDANSETRON HYDROCHLORIDE
     Dosage: NI
  19. OXYCODONE [Concomitant]
     Active Substance: OXYCODONE
     Dosage: NI
  20. MIRALAX [Concomitant]
     Active Substance: POLYETHYLENE GLYCOL 3350
     Dosage: NI
  21. ACETYLSALICYLIC ACID [Concomitant]
     Active Substance: ASPIRIN
     Dosage: NI
  22. ADVAIR HFA [Concomitant]
     Active Substance: FLUTICASONE PROPIONATE\SALMETEROL XINAFOATE
     Dosage: NI
  23. SENNA [Concomitant]
     Active Substance: SENNA LEAF\SENNOSIDES\SENNOSIDES A AND B
     Dosage: NI
  24. ALBUTEROL. [Concomitant]
     Active Substance: ALBUTEROL
     Dosage: NI
  25. VIBRAMYCIN [Concomitant]
     Active Substance: DOXYCYCLINE
     Dosage: NI
  26. FOLIC ACID. [Concomitant]
     Active Substance: FOLIC ACID
     Dosage: NI
  27. NORCO [Concomitant]
     Active Substance: ACETAMINOPHEN\HYDROCODONE BITARTRATE
     Dosage: NI
  28. SYNTHROID [Concomitant]
     Active Substance: LEVOTHYROXINE SODIUM
     Dosage: NI
  29. LISINOPRIL. [Concomitant]
     Active Substance: LISINOPRIL
     Dosage: NI
  30. LYRICA [Concomitant]
     Active Substance: PREGABALIN
     Dosage: NI
  31. MAGNESIUM CITRATE. [Concomitant]
     Active Substance: MAGNESIUM CITRATE
     Dosage: NI

REACTIONS (5)
  - Sleep disorder [Unknown]
  - Hospitalisation [Unknown]
  - Hypersomnia [Unknown]
  - Nausea [Unknown]
  - Fatigue [Unknown]

NARRATIVE: CASE EVENT DATE: 201702
